FAERS Safety Report 18330011 (Version 1)
Quarter: 2020Q3

REPORT INFORMATION
  Report Type: Spontaneous
  Country: TR (occurrence: TR)
  Receive Date: 20200930
  Receipt Date: 20200930
  Transmission Date: 20201103
  Serious: Yes (Hospitalization)
  Sender: FDA-Public Use
  Company Number: TR-ASTRAZENECA-2020SF23631

PATIENT
  Age: 54 Year
  Sex: Male

DRUGS (4)
  1. ARIPIPRAZOLE. [Concomitant]
     Active Substance: ARIPIPRAZOLE
     Route: 065
  2. AMISULPRIDE [Concomitant]
     Active Substance: AMISULPRIDE
     Route: 065
  3. QUETIAPINE. [Suspect]
     Active Substance: QUETIAPINE
     Route: 048
  4. CLOZAPINE. [Concomitant]
     Active Substance: CLOZAPINE
     Route: 065

REACTIONS (1)
  - Interstitial lung disease [Recovered/Resolved]
